FAERS Safety Report 25938845 (Version 1)
Quarter: 2025Q4

REPORT INFORMATION
  Report Type: Report from Study
  Country: EU (occurrence: EU)
  Receive Date: 20251019
  Receipt Date: 20251019
  Transmission Date: 20260118
  Serious: Yes (Death, Hospitalization)
  Sender: ABBVIE
  Company Number: EU-ABBVIE-6509501

PATIENT
  Age: 69 Year
  Sex: Female

DRUGS (9)
  1. FOSCARBIDOPA\FOSLEVODOPA [Suspect]
     Active Substance: FOSCARBIDOPA\FOSLEVODOPA
     Indication: Parkinson^s disease
     Dosage: BASE DOSE: 0.32 ML, SMALL DOSE: 0.34 ML/H, LARGE DOSE: 0.36, EXTRA: 0.2 ML, LOADING: 0.4 ML
     Route: 058
     Dates: start: 20250304
  2. NEUPRO [Concomitant]
     Active Substance: ROTIGOTINE
     Indication: Parkinson^s disease
     Dosage: FORM STRENGTH: 4 MILLIGRAM, TTS
     Route: 062
  3. ENOXAPARIN SODIUM [Concomitant]
     Active Substance: ENOXAPARIN SODIUM
     Indication: Product used for unknown indication
     Dosage: 4000 IU (40 MG)/0,4 ML
  4. XADAGO [Concomitant]
     Active Substance: SAFINAMIDE MESYLATE
     Indication: Parkinson^s disease
     Dosage: FORM STRENGTH 100 MILLIGRAM
     Route: 048
  5. POTASSIUM CHLORIDE [Concomitant]
     Active Substance: POTASSIUM CHLORIDE
     Indication: Prophylaxis
     Dosage: 2400 MILLIGRAM FORM STRENGTH: 600 MG
     Route: 048
     Dates: start: 202508
  6. DULOXETINE HYDROCHLORIDE [Concomitant]
     Active Substance: DULOXETINE HYDROCHLORIDE
     Indication: Depression
     Dosage: FORM STRENGTH: 30 MILLIGRAM
     Route: 048
  7. PANTOPRAZOLE SODIUM [Concomitant]
     Active Substance: PANTOPRAZOLE SODIUM
     Indication: Gastrooesophageal reflux disease
     Dosage: FORM STRENGTH 40 MILLIGRAM
     Route: 048
  8. Citrocalcium [Concomitant]
     Indication: Osteoporosis
     Dosage: FORM STRENGTH 200 MILLIGRAM
     Route: 048
  9. FLUDROCORTISONE [Concomitant]
     Active Substance: FLUDROCORTISONE
     Indication: Hypotension
     Dosage: FORM STRENGTH 0.1 MILLIGRAM
     Route: 048

REACTIONS (3)
  - Death [Fatal]
  - Liver function test abnormal [Not Recovered/Not Resolved]
  - Blood test abnormal [Not Recovered/Not Resolved]

NARRATIVE: CASE EVENT DATE: 20251009
